FAERS Safety Report 5673292-9 (Version None)
Quarter: 2008Q1

REPORT INFORMATION
  Report Type: 
  Country: None (occurrence: None)
  Receive Date: 20080319
  Receipt Date: 20080307
  Transmission Date: 20080703
  Serious: Yes (Death)
  Sender: FDA-Public Use
  Company Number: US-ELI_LILLY_AND_COMPANY-US200803001597

PATIENT
  Sex: Female

DRUGS (8)
  1. FORTEO [Suspect]
     Dates: start: 20070101
  2. LORAZEPAM [Concomitant]
  3. ZOLOFT [Concomitant]
  4. PREDNISONE [Concomitant]
  5. NEXIUM [Concomitant]
  6. SINGULAIR [Concomitant]
  7. CALCIUM [Concomitant]
  8. MULTI-VITAMIN [Concomitant]

REACTIONS (1)
  - DEATH [None]
